FAERS Safety Report 6837298-6 (Version None)
Quarter: 2010Q3

REPORT INFORMATION
  Report Type: 
  Country: None (occurrence: None)
  Receive Date: 20100707
  Receipt Date: 20100702
  Transmission Date: 20110219
  Serious: Yes (Other)
  Sender: FDA-Public Use
  Company Number: 2009SP024413

PATIENT
  Age: 19 Year
  Sex: Female

DRUGS (2)
  1. NUVARING [Suspect]
     Indication: PRODUCT USED FOR UNKNOWN INDICATION
     Dates: start: 20081201, end: 20090802
  2. CLARITHROMYCIN [Suspect]
     Indication: SINUSITIS
     Dosage: ; VAG
     Route: 067
     Dates: start: 20090701

REACTIONS (4)
  - DRUG EXPOSURE DURING PREGNANCY [None]
  - HELLP SYNDROME [None]
  - INTRA-UTERINE DEATH [None]
  - PREGNANCY WITH CONTRACEPTIVE DEVICE [None]
